FAERS Safety Report 9838830 (Version 1)
Quarter: 2014Q1

REPORT INFORMATION
  Report Type: Spontaneous
  Country: US (occurrence: None)
  Receive Date: 20140117
  Receipt Date: 20140117
  Transmission Date: 20141002
  Serious: Yes (Other)
  Sender: FDA-Public Use
  Company Number: None

PATIENT
  Age: 74 Year
  Sex: Female
  Weight: 47.63 kg

DRUGS (3)
  1. REMICADE [Suspect]
     Dosage: 500MG  EVERY 4 WEEKS IV
     Route: 042
  2. METHOTREXATE [Suspect]
     Dosage: 0.5 ML  EVERY WEEK SQ?YEARS OF USE
     Route: 058
  3. PREDNISONE [Concomitant]

REACTIONS (1)
  - Squamous cell carcinoma of lung [None]
